FAERS Safety Report 4507916-6 (Version None)
Quarter: 2004Q4

REPORT INFORMATION
  Report Type: 
  Country: None (occurrence: None)
  Receive Date: 20041118
  Receipt Date: 20041105
  Transmission Date: 20050328
  Serious: Yes (Death, Hospitalization)
  Sender: FDA-Public Use
  Company Number: 2004AP04685

PATIENT
  Age: 77 Year
  Sex: Male

DRUGS (7)
  1. IRESSA [Suspect]
     Indication: NON-SMALL CELL LUNG CANCER
     Dosage: 250 MG DAILY PO
     Route: 048
     Dates: start: 20040825, end: 20040831
  2. PREDONINE [Suspect]
     Indication: RADIATION PNEUMONITIS
     Dosage: 20 MG DAILY PO
     Route: 048
     Dates: start: 20040727, end: 20040902
  3. INTEBAN [Concomitant]
  4. MS CONTIN [Concomitant]
  5. FAMOTIDINE [Concomitant]
  6. RADIATION THERAPY [Concomitant]
  7. MARUYAMA VACCINE [Concomitant]

REACTIONS (7)
  - DRUG INEFFECTIVE [None]
  - EMPHYSEMA [None]
  - LUNG DISORDER [None]
  - PERITONEAL DISORDER [None]
  - PNEUMATOSIS [None]
  - PNEUMOMEDIASTINUM [None]
  - RESPIRATORY FAILURE [None]
